FAERS Safety Report 7498543-X (Version None)
Quarter: 2011Q2

REPORT INFORMATION
  Report Type: 
  Country: None (occurrence: None)
  Receive Date: 20110524
  Receipt Date: 20110425
  Transmission Date: 20111010
  Serious: Yes (Other)
  Sender: FDA-Public Use
  Company Number: US-BAYER-201025979NA

PATIENT
  Age: 32 Year
  Sex: Female
  Weight: 124.26 kg

DRUGS (8)
  1. PANTOPRAZOLE SODIUM [Concomitant]
     Indication: GASTROOESOPHAGEAL REFLUX DISEASE
     Dosage: UNK
     Dates: start: 20090601
  2. SYMAX [Concomitant]
     Indication: DYSPEPSIA
     Dosage: UNK
     Dates: start: 20080901
  3. NSAID'S [Concomitant]
  4. DROSPIRENONE AND ETHINYL ESTRADIOL [Suspect]
     Indication: CONTRACEPTION
     Dosage: QD
     Route: 048
     Dates: start: 20080701, end: 20090801
  5. LISINOPRIL AND HYDROCHLOROTHIAZIDE [Concomitant]
     Indication: HYPERTENSION
     Dosage: UNK
     Dates: start: 19990101
  6. METFORMIN [Concomitant]
     Indication: POLYCYSTIC OVARIES
     Dosage: UNK
     Dates: start: 19990101
  7. ALPRAZOLAM [Concomitant]
     Indication: MENIERE'S DISEASE
     Dosage: UNK
     Dates: start: 20100101
  8. YASMIN [Suspect]
     Indication: CONTRACEPTION
     Dosage: QD
     Route: 048
     Dates: start: 20060801, end: 20060901

REACTIONS (7)
  - EMOTIONAL DISTRESS [None]
  - NAUSEA [None]
  - HEPATIC NEOPLASM [None]
  - ABDOMINAL PAIN UPPER [None]
  - HEPATIC MASS [None]
  - CHOLECYSTITIS [None]
  - GALLBLADDER DISORDER [None]
